FAERS Safety Report 6318361-5 (Version None)
Quarter: 2009Q3

REPORT INFORMATION
  Report Type: 
  Country: None (occurrence: None)
  Receive Date: 20090820
  Receipt Date: 20090820
  Transmission Date: 20100115
  Serious: Yes (Hospitalization)
  Sender: FDA-Public Use
  Company Number: None

PATIENT
  Sex: Female
  Weight: 57.2 kg

DRUGS (1)
  1. ERBITUX [Suspect]
     Dosage: 410 MG

REACTIONS (1)
  - DIARRHOEA [None]
